FAERS Safety Report 5120107-3 (Version None)
Quarter: 2006Q4

REPORT INFORMATION
  Report Type: 
  Country: None (occurrence: None)
  Receive Date: 20061002
  Receipt Date: 20061002
  Transmission Date: 20070319
  Serious: Yes (Death, Hospitalization)
  Sender: FDA-Public Use
  Company Number: None

PATIENT
  Sex: Female
  Weight: 48.8 kg

DRUGS (9)
  1. CYCLOPHOSPHAMIDE [Suspect]
     Dosage: 1740 MG
  2. CELEBREX [Suspect]
     Dosage: 8200 MG
  3. DOXORUBICIN HYDROCHLORIDE [Suspect]
     Dosage: 110 MG
  4. ETOPOSIDE [Suspect]
     Dosage: 0 MG
  5. G-CSF (FILGRASTIM, AMGEN) [Suspect]
     Dosage: 1490 MCG
  6. IFOSFAMIDE [Suspect]
     Dosage: 0 MG
  7. MESNA [Suspect]
     Dosage: 1050 MG
  8. VINBLASTINE SULFATE [Suspect]
     Dosage: 6 MG
  9. VINCRISTINE SULFATE [Suspect]
     Dosage: 2 MG

REACTIONS (18)
  - BACTERIA BLOOD IDENTIFIED [None]
  - BRONCHOALVEOLAR LAVAGE ABNORMAL [None]
  - DUODENITIS [None]
  - FLUID OVERLOAD [None]
  - FUNGUS BODY FLUID IDENTIFIED [None]
  - GASTRITIS [None]
  - GASTROINTESTINAL HAEMORRHAGE [None]
  - GENERAL PHYSICAL HEALTH DETERIORATION [None]
  - HEPATIC FAILURE [None]
  - LUNG INFILTRATION [None]
  - NEUTROPENIA [None]
  - OESOPHAGITIS [None]
  - OXYGEN SATURATION DECREASED [None]
  - PYREXIA [None]
  - RENAL FAILURE [None]
  - STREPTOCOCCAL INFECTION [None]
  - SUBCUTANEOUS EMPHYSEMA [None]
  - WHITE BLOOD CELL COUNT INCREASED [None]
